FAERS Safety Report 14080402 (Version 3)
Quarter: 2018Q2

REPORT INFORMATION
  Report Type: Spontaneous
  Country: DE (occurrence: DE)
  Receive Date: 20171012
  Receipt Date: 20180412
  Transmission Date: 20180711
  Serious: Yes (Hospitalization, Other)
  Sender: FDA-Public Use
  Company Number: PHHY2017DE147561

PATIENT
  Age: 79 Year
  Sex: Male

DRUGS (17)
  1. UNACID PD [Interacting]
     Active Substance: SULTAMICILLIN TOSYLATE
     Dosage: UNK
     Route: 065
  2. BISOPROLOL [Concomitant]
     Active Substance: BISOPROLOL
     Dosage: 5 MG, 1/2 - 0- 1/2
  3. DREISAFER [Concomitant]
     Dosage: UNK
     Route: 065
  4. VOLTAREN RESINAT [Interacting]
     Active Substance: DICLOFENAC
     Indication: PRODUCT USED FOR UNKNOWN INDICATION
     Route: 065
  5. RIVAROXABAN [Concomitant]
     Active Substance: RIVAROXABAN
     Indication: ATRIAL FIBRILLATION
     Dosage: 20 MG, QD
     Route: 048
  6. IBUPROFEN. [Suspect]
     Active Substance: IBUPROFEN
     Indication: PRODUCT USED FOR UNKNOWN INDICATION
     Route: 065
  7. VALSARTAN AND HYDROCHLOROTHIAZIDE [Concomitant]
     Active Substance: HYDROCHLOROTHIAZIDE\VALSARTAN
     Indication: PRODUCT USED FOR UNKNOWN INDICATION
     Route: 048
  8. BISOPROLOL [Concomitant]
     Active Substance: BISOPROLOL
     Indication: PRODUCT USED FOR UNKNOWN INDICATION
     Dosage: 5 MG, BID
     Route: 065
  9. RIVAROXABAN [Concomitant]
     Active Substance: RIVAROXABAN
     Dosage: 20 MG, DAILY
     Route: 048
  10. XARELTO [Interacting]
     Active Substance: RIVAROXABAN
     Indication: PRODUCT USED FOR UNKNOWN INDICATION
     Dosage: 20 MG, UNK
     Route: 065
     Dates: end: 201709
  11. DREISAFER [Concomitant]
     Indication: IRON DEFICIENCY
     Route: 065
  12. EZETIMIBE/SIMVASTATIN [Concomitant]
     Active Substance: EZETIMIBE\SIMVASTATIN
     Indication: PRODUCT USED FOR UNKNOWN INDICATION
     Route: 065
  13. UNACID PD [Interacting]
     Active Substance: SULTAMICILLIN TOSYLATE
     Indication: INFECTED BITE
     Dosage: 2 DF, BID
     Route: 048
     Dates: start: 20170824
  14. UNACID PD [Interacting]
     Active Substance: SULTAMICILLIN TOSYLATE
     Dosage: DAILY DOSE: 1500 MG MILLIGRAM(S) EVERY DAY
     Route: 048
     Dates: start: 20170824
  15. VALSARTAN AND HYDROCHLOROTHIAZIDE [Concomitant]
     Active Substance: HYDROCHLOROTHIAZIDE\VALSARTAN
     Dosage: 80 / 12.5 MG, 1X/DAY
     Route: 065
  16. METAMIZOL [Concomitant]
     Active Substance: METAMIZOLE SODIUM
     Indication: ANALGESIC THERAPY
     Dosage: 500 MG, PRN
     Route: 065
  17. EZETIMIBE/SIMVASTATIN [Concomitant]
     Active Substance: EZETIMIBE\SIMVASTATIN
     Dosage: 10/20MG 1X/DAY
     Route: 065

REACTIONS (13)
  - Drug interaction [Unknown]
  - Iron deficiency [Unknown]
  - Haemorrhage [Unknown]
  - Gastrointestinal angiectasia [Recovered/Resolved]
  - Fatigue [Unknown]
  - Dizziness [Unknown]
  - Faeces discoloured [Unknown]
  - Diarrhoea [Unknown]
  - Haematochezia [Unknown]
  - Haemorrhagic anaemia [Unknown]
  - Haemoglobin decreased [Unknown]
  - Lower gastrointestinal haemorrhage [Recovered/Resolved]
  - Gastrointestinal vascular malformation haemorrhagic [Unknown]

NARRATIVE: CASE EVENT DATE: 2017
